FAERS Safety Report 8155116-3 (Version None)
Quarter: 2012Q1

REPORT INFORMATION
  Report Type: 
  Country: None (occurrence: None)
  Receive Date: 20120221
  Receipt Date: 20120213
  Transmission Date: 20120608
  Serious: Yes (Hospitalization)
  Sender: FDA-Public Use
  Company Number: IT-ROCHE-1006829

PATIENT
  Sex: Female

DRUGS (6)
  1. MABTHERA [Suspect]
     Indication: NON-HODGKIN'S LYMPHOMA
     Route: 042
     Dates: start: 20110905, end: 20110905
  2. CHLORPHENIRAMINE MALEATE [Concomitant]
     Indication: HYPERSENSITIVITY
     Route: 042
     Dates: start: 20110905, end: 20110905
  3. CYCLOPHOSPHAMIDE [Concomitant]
     Route: 042
     Dates: start: 20110905, end: 20110905
  4. VINCRISTINE [Concomitant]
     Route: 040
     Dates: start: 20110905, end: 20110905
  5. ACETAMINOPHEN [Concomitant]
     Indication: ANALGESIC THERAPY
     Route: 048
     Dates: start: 20110905, end: 20110905
  6. METHYLPREDNISOLONE [Concomitant]
     Route: 042
     Dates: start: 20110905, end: 20110905

REACTIONS (4)
  - ENCEPHALOPATHY [None]
  - SCOTOMA [None]
  - LOSS OF CONSCIOUSNESS [None]
  - CLONIC CONVULSION [None]
